FAERS Safety Report 9241680 (Version 1)
Quarter: 2013Q2

REPORT INFORMATION
  Report Type: Report from Study
  Country: US (occurrence: US)
  Receive Date: 20130419
  Receipt Date: 20130419
  Transmission Date: 20140414
  Serious: Yes (Hospitalization)
  Sender: FDA-Public Use
  Company Number: PHEH2013US008471

PATIENT
  Age: 15 Year
  Sex: Female
  Weight: 55.2 kg

DRUGS (5)
  1. AFINITOR [Suspect]
     Indication: ASTROCYTOMA, LOW GRADE
     Dosage: 7.5 MG, QD
     Route: 048
     Dates: start: 20120925
  2. LAMICTAL XR [Concomitant]
     Indication: CONVULSION
     Dosage: 400 MG, DAILY (100 MG BREAK FAST AND LUNCH EACH AND 200 MG DINNER)
  3. MELATONIN [Concomitant]
     Indication: INSOMNIA
     Dosage: 6 MG, UNK
  4. DAILY MULTIVITAMIN [Concomitant]
  5. VITAMIIN C [Concomitant]

REACTIONS (3)
  - Asperger^s disorder [Not Recovered/Not Resolved]
  - Convulsion [Not Recovered/Not Resolved]
  - Tic [Not Recovered/Not Resolved]
